FAERS Safety Report 14075818 (Version 1)
Quarter: 2017Q4

REPORT INFORMATION
  Report Type: Spontaneous
  Country: US (occurrence: US)
  Receive Date: 20171010
  Receipt Date: 20171010
  Transmission Date: 20180321
  Serious: No
  Sender: FDA-Public Use
  Company Number: US-MYLANLABS-2017M1003317

PATIENT
  Age: 64 Year
  Sex: Male

DRUGS (1)
  1. EPIPEN [Suspect]
     Active Substance: EPINEPHRINE
     Indication: ARTHROPOD STING
     Dosage: 0.3 MG, ONCE
     Route: 030
     Dates: start: 20170117, end: 20170117

REACTIONS (4)
  - Anxiety [Recovering/Resolving]
  - Expired product administered [Recovered/Resolved]
  - Feeling jittery [Recovering/Resolving]
  - Accidental exposure to product [Recovered/Resolved]

NARRATIVE: CASE EVENT DATE: 20170117
